FAERS Safety Report 7171933-0 (Version None)
Quarter: 2010Q4

REPORT INFORMATION
  Report Type: 
  Country: None (occurrence: None)
  Receive Date: 20101217
  Receipt Date: 20101207
  Transmission Date: 20110411
  Serious: Yes (Other)
  Sender: FDA-Public Use
  Company Number: JP-MERCK-1012USA01851

PATIENT
  Age: 71 Year
  Sex: Male

DRUGS (3)
  1. PEPCID RPD [Suspect]
     Route: 048
  2. OLMETEC [Concomitant]
     Route: 048
  3. ADALAT CC [Concomitant]
     Route: 048

REACTIONS (1)
  - INTERSTITIAL LUNG DISEASE [None]
